FAERS Safety Report 8757982 (Version 2)
Quarter: 2012Q4

REPORT INFORMATION
  Report Type: 
  Country: US (occurrence: US)
  Receive Date: 20120828
  Receipt Date: 20120921
  Transmission Date: 20130627
  Serious: Yes (Death, Other)
  Sender: FDA-Public Use
  Company Number: US-ELI_LILLY_AND_COMPANY-US201208007512

PATIENT
  Age: 63 Year
  Sex: Female

DRUGS (1)
  1. GEMZAR [Suspect]
     Indication: RENAL CANCER STAGE IV
     Dosage: 1400 mg days 1 and 8 every 3 weeks
     Route: 042
     Dates: start: 20110930, end: 20111115

REACTIONS (2)
  - Death [Fatal]
  - Neoplasm progression [Unknown]
